FAERS Safety Report 19703972 (Version 3)
Quarter: 2021Q3

REPORT INFORMATION
  Report Type: Spontaneous
  Country: JP (occurrence: JP)
  Receive Date: 20210816
  Receipt Date: 20210903
  Transmission Date: 20211014
  Serious: Yes (Other)
  Sender: FDA-Public Use
  Company Number: JP-SUN PHARMACEUTICAL INDUSTRIES LTD-2021R1-306847

PATIENT
  Age: 22 Year
  Sex: Male
  Weight: 54.5 kg

DRUGS (8)
  1. TEGRETOL [Suspect]
     Active Substance: CARBAMAZEPINE
     Indication: INTELLECTUAL DISABILITY
  2. LEVETIRACETAM. [Suspect]
     Active Substance: LEVETIRACETAM
     Indication: INTELLECTUAL DISABILITY
     Dosage: UNK(500 MG?1500 MG/DAY) FROM THE AGE OF 18
     Route: 048
  3. TEGRETOL [Suspect]
     Active Substance: CARBAMAZEPINE
     Indication: EPILEPSY
     Dosage: UNK (800 MG?1200 MG/DAY) FROM THE AGE OF 15
     Route: 048
  4. LEVETIRACETAM. [Suspect]
     Active Substance: LEVETIRACETAM
     Indication: EPILEPSY
  5. VALPROIC ACID. [Suspect]
     Active Substance: VALPROIC ACID
     Indication: EPILEPSY
  6. IMIPRAMINE [Suspect]
     Active Substance: IMIPRAMINE
     Indication: EPILEPSY
  7. VALPROIC ACID. [Suspect]
     Active Substance: VALPROIC ACID
     Indication: INTELLECTUAL DISABILITY
     Dosage: UNK (  600 MG?800 MG/DAY) FROM THE AGE OF 11
     Route: 048
  8. IMIPRAMINE [Suspect]
     Active Substance: IMIPRAMINE
     Indication: INTELLECTUAL DISABILITY
     Dosage: UNK ((40 MG?50 MG/DAY) FROM THE AGE OF 13 TO 19 YEARS)
     Route: 048

REACTIONS (2)
  - Diarrhoea [Unknown]
  - Hepatic adenoma [Recovered/Resolved]
